FAERS Safety Report 15061582 (Version 1)
Quarter: 2018Q2

REPORT INFORMATION
  Report Type: Spontaneous
  Country: US (occurrence: US)
  Receive Date: 20180605
  Receipt Date: 20180605
  Transmission Date: 20180711
  Serious: Yes (Life-Threatening, Hospitalization)
  Sender: FDA-Public Use
  Company Number: None

PATIENT
  Age: 41 Year
  Sex: Male
  Weight: 96 kg

DRUGS (1)
  1. SULFAMETHOXAZOLE/TRIMETHOPRIM [Suspect]
     Active Substance: SULFAMETHOXAZOLE\TRIMETHOPRIM
     Indication: LIMB INJURY
     Route: 048
     Dates: start: 20180526, end: 20180601

REACTIONS (7)
  - Nausea [None]
  - Paraesthesia oral [None]
  - Pain [None]
  - Stevens-Johnson syndrome [None]
  - Oral disorder [None]
  - Lip disorder [None]
  - Pyrexia [None]

NARRATIVE: CASE EVENT DATE: 20180605
